FAERS Safety Report 9121568 (Version 2)
Quarter: 2013Q2

REPORT INFORMATION
  Report Type: Spontaneous
  Country: US (occurrence: US)
  Receive Date: 20130227
  Receipt Date: 20130402
  Transmission Date: 20140414
  Serious: Yes (Hospitalization)
  Sender: FDA-Public Use
  Company Number: US-BIOGENIDEC-2013BI018875

PATIENT
  Age: 62 Year
  Sex: Female

DRUGS (2)
  1. TYSABRI [Suspect]
     Indication: MULTIPLE SCLEROSIS
     Route: 042
     Dates: start: 20130107, end: 201302
  2. AVONEX [Concomitant]
     Indication: MULTIPLE SCLEROSIS
     Route: 030

REACTIONS (5)
  - Vomiting [Recovered/Resolved]
  - Electrolyte imbalance [Recovered/Resolved]
  - Urinary tract infection [Recovered/Resolved]
  - Aphagia [Not Recovered/Not Resolved]
  - Dysphonia [Not Recovered/Not Resolved]
